FAERS Safety Report 18252645 (Version 1)
Quarter: 2020Q3

REPORT INFORMATION
  Report Type: Spontaneous
  Country: US (occurrence: US)
  Receive Date: 20200909
  Receipt Date: 20200909
  Transmission Date: 20201103
  Serious: Yes (Other)
  Sender: FDA-Public Use
  Company Number: None

PATIENT
  Age: 69 Year
  Sex: Female

DRUGS (1)
  1. DESVENLAFAXINE 50MG [Suspect]
     Active Substance: DESVENLAFAXINE
     Indication: MAJOR DEPRESSION
     Dates: start: 201405

REACTIONS (2)
  - Therapy interrupted [None]
  - Product solubility abnormal [None]

NARRATIVE: CASE EVENT DATE: 20200909
